FAERS Safety Report 21571346 (Version 1)
Quarter: 2022Q4

REPORT INFORMATION
  Report Type: Spontaneous
  Country: US (occurrence: None)
  Receive Date: 20221108
  Receipt Date: 20221108
  Transmission Date: 20230112
  Serious: Yes (Life-Threatening, Hospitalization, Other)
  Sender: FDA-Public Use
  Company Number: None

PATIENT
  Age: 66 Year
  Sex: Female
  Weight: 95.25 kg

DRUGS (1)
  1. DABIGATRAN [Suspect]
     Active Substance: DABIGATRAN
     Indication: Embolism venous
     Dosage: FREQUENCY : TWICE A DAY;?
     Route: 048
     Dates: start: 20211020, end: 20220929

REACTIONS (8)
  - Rectal haemorrhage [None]
  - Gastrointestinal haemorrhage [None]
  - Blood pressure decreased [None]
  - Haemoglobin decreased [None]
  - Platelet count decreased [None]
  - Diverticulum intestinal [None]
  - Diverticulum gastric [None]
  - Haematocrit decreased [None]
